FAERS Safety Report 9029392 (Version 2)
Quarter: 2015Q3

REPORT INFORMATION
  Report Type: Report from Study
  Country: AR (occurrence: AR)
  Receive Date: 20130125
  Receipt Date: 20150904
  Transmission Date: 20151125
  Serious: Yes (Death, Other)
  Sender: FDA-Public Use
  Company Number: PHHY2013AR005475

PATIENT
  Sex: Male

DRUGS (2)
  1. DIOVAN [Suspect]
     Active Substance: VALSARTAN
     Indication: HYPERTENSION
     Dosage: 80 MG, QD
     Route: 048
     Dates: start: 2001
  2. DIOVAN [Suspect]
     Active Substance: VALSARTAN
     Dosage: 80 OT, UNK
     Route: 065

REACTIONS (2)
  - Intracranial aneurysm [Fatal]
  - Pemphigus [Unknown]
